FAERS Safety Report 7089140-9 (Version None)
Quarter: 2010Q4

REPORT INFORMATION
  Report Type: 
  Country: None (occurrence: None)
  Receive Date: 20101108
  Receipt Date: 20101028
  Transmission Date: 20110411
  Serious: No
  Sender: FDA-Public Use
  Company Number: US-B.I. PHARMACEUTICALS,INC./RIDGEFIELD-2010-BP-12157BP

PATIENT

DRUGS (1)
  1. SPIRIVA [Suspect]

REACTIONS (3)
  - ADVERSE REACTION [None]
  - DIZZINESS [None]
  - DYSPNOEA [None]
